FAERS Safety Report 9678171 (Version 1)
Quarter: 2013Q4

REPORT INFORMATION
  Report Type: Spontaneous
  Country: US (occurrence: US)
  Receive Date: 20131108
  Receipt Date: 20131108
  Transmission Date: 20140711
  Serious: Yes (Other)
  Sender: FDA-Public Use
  Company Number: US-SA-2013SA114089

PATIENT
  Age: 66 Year
  Sex: Female

DRUGS (11)
  1. AMBIEN [Suspect]
     Route: 065
  2. XELJANZ [Suspect]
     Indication: RHEUMATOID ARTHRITIS
     Route: 048
     Dates: start: 201308, end: 20130918
  3. SIMVASTATIN [Concomitant]
     Route: 065
  4. DIAZEPAM [Concomitant]
     Route: 065
  5. TRAZODONE HYDROCHLORIDE [Concomitant]
     Route: 065
  6. CYCLOBENZAPINE HCL [Concomitant]
     Route: 065
  7. CLOPIDOGREL [Concomitant]
     Route: 065
  8. PREDNISONE [Concomitant]
     Route: 065
  9. OXYCODONE HYDROCHLORIDE [Concomitant]
     Route: 065
  10. ACETAMINOPHEN [Concomitant]
     Route: 065
  11. HYDROCODONE [Concomitant]
     Dosage: 10 MG 65 MG HYDROCODONE-ACETAMINOP
     Route: 065

REACTIONS (3)
  - Haematuria [Recovering/Resolving]
  - Drug hypersensitivity [Unknown]
  - Nausea [Recovered/Resolved]
